FAERS Safety Report 24684749 (Version 1)
Quarter: 2024Q4

REPORT INFORMATION
  Report Type: Report from Study
  Country: CN (occurrence: CN)
  Receive Date: 20241202
  Receipt Date: 20241202
  Transmission Date: 20250114
  Serious: Yes (Other)
  Sender: ROCHE
  Company Number: CN-ROCHE-10000143571

PATIENT

DRUGS (8)
  1. ATEZOLIZUMAB [Suspect]
     Active Substance: ATEZOLIZUMAB
     Indication: Hepatocellular carcinoma
     Route: 042
  2. BEVACIZUMAB [Suspect]
     Active Substance: BEVACIZUMAB
     Indication: Hepatocellular carcinoma
     Route: 042
  3. SINTILIMAB [Suspect]
     Active Substance: SINTILIMAB
     Indication: Hepatocellular carcinoma
     Route: 042
  4. CAMRELIZUMAB [Suspect]
     Active Substance: CAMRELIZUMAB
     Indication: Hepatocellular carcinoma
     Route: 042
  5. LENVATINIB [Suspect]
     Active Substance: LENVATINIB
     Indication: Hepatocellular carcinoma
     Route: 048
  6. LOBAPLATIN [Suspect]
     Active Substance: LOBAPLATIN
     Indication: Hepatocellular carcinoma
     Dosage: 30 TO 50 MG
     Route: 042
  7. LIPIODOL [Suspect]
     Active Substance: ETHIODIZED OIL
     Indication: Hepatocellular carcinoma
     Dosage: 5 TO 20 ML
     Route: 065
  8. EPIRUBICIN [Suspect]
     Active Substance: EPIRUBICIN
     Indication: Hepatocellular carcinoma
     Dosage: 10 TO 20 MG
     Route: 065

REACTIONS (7)
  - Hypertension [Unknown]
  - Aspartate aminotransferase increased [Unknown]
  - Alanine aminotransferase increased [Unknown]
  - Palmar-plantar erythrodysaesthesia syndrome [Unknown]
  - Abdominal pain [Unknown]
  - Pyrexia [Unknown]
  - Hypothyroidism [Unknown]
